FAERS Safety Report 9870218 (Version 3)
Quarter: 2014Q1

REPORT INFORMATION
  Report Type: Spontaneous
  Country: JP (occurrence: JP)
  Receive Date: 20140205
  Receipt Date: 20140305
  Transmission Date: 20141002
  Serious: Yes (Hospitalization)
  Sender: FDA-Public Use
  Company Number: JP-BAYER-2014-016432

PATIENT
  Age: 48 Year
  Sex: Female
  Weight: 48 kg

DRUGS (4)
  1. MIRENA [Suspect]
     Indication: ADENOMYOSIS
     Dosage: 20 MCG/24HR, CONT
     Route: 015
     Dates: start: 20090914, end: 20130917
  2. MIRENA [Suspect]
     Indication: MENORRHAGIA
  3. FESIN [Concomitant]
     Indication: ANAEMIA
     Dosage: DAILY DOSE 40 MG
     Route: 042
     Dates: start: 20091025, end: 20091122
  4. GLUCOSE [Concomitant]
     Indication: ANAEMIA
     Dosage: DAILY DOSE 1 DF
     Route: 042
     Dates: start: 20091025, end: 20091122

REACTIONS (3)
  - Uterine cancer [Recovering/Resolving]
  - Ovarian cancer [Recovering/Resolving]
  - Off label use [None]
